FAERS Safety Report 16277435 (Version 1)
Quarter: 2019Q2

REPORT INFORMATION
  Report Type: Spontaneous
  Country: DE (occurrence: DE)
  Receive Date: 20190506
  Receipt Date: 20190506
  Transmission Date: 20190711
  Serious: Yes (Hospitalization)
  Sender: FDA-Public Use
  Company Number: PHHY2019DE102738

PATIENT
  Sex: Female
  Weight: 74 kg

DRUGS (2)
  1. RAMIPRIL 1A PHARMA PLUS [Suspect]
     Active Substance: RAMIPRIL
     Indication: PRODUCT USED FOR UNKNOWN INDICATION
     Dosage: UNK
     Route: 065
  2. RAMIPRIL COMP [Suspect]
     Active Substance: HYDROCHLOROTHIAZIDE\RAMIPRIL
     Indication: PRODUCT USED FOR UNKNOWN INDICATION
     Dosage: UNK
     Route: 065

REACTIONS (7)
  - Chest discomfort [Unknown]
  - Hypoaesthesia [Unknown]
  - Pharyngeal swelling [Unknown]
  - Fear [Unknown]
  - Paraesthesia [Unknown]
  - Swollen tongue [Unknown]
  - Dyspnoea [Unknown]

NARRATIVE: CASE EVENT DATE: 2014
